FAERS Safety Report 8189307-2 (Version None)
Quarter: 2012Q1

REPORT INFORMATION
  Report Type: 
  Country: None (occurrence: None)
  Receive Date: 20120307
  Receipt Date: 20120228
  Transmission Date: 20120608
  Serious: Yes (Other)
  Sender: FDA-Public Use
  Company Number: US-BAYER-2011-034304

PATIENT
  Age: 21 Year
  Sex: Female
  Weight: 57 kg

DRUGS (13)
  1. AMOXI CLAVULAN AL [Concomitant]
     Dosage: 875 MG, TID
     Route: 048
  2. YASMIN [Suspect]
     Indication: ACNE
     Dosage: UNK
     Dates: start: 20051019, end: 20071001
  3. PROMETHAZINE [Concomitant]
     Dosage: 12.5 MG, TID
     Route: 048
  4. BROMPHENIRAMINE MALEATE/PHENYLEPHRINE HCL [Concomitant]
     Dosage: 30 MG, TID
     Route: 048
  5. ZITHROMAX [Concomitant]
     Dosage: UNK
     Dates: start: 20100113
  6. TESSALON [Concomitant]
     Indication: COUGH
     Dosage: 200 MG, TID
     Dates: start: 20100113
  7. YASMIN [Suspect]
     Indication: MENSTRUAL DISORDER
  8. YAZ [Suspect]
     Indication: ACNE
     Dosage: UNK
     Dates: start: 20080610, end: 20100501
  9. YAZ [Suspect]
     Indication: MENSTRUAL DISORDER
  10. NAPROXEN SODIUM AND PSEUDOEPHEDRINE HYDROCHLORIDE [Concomitant]
     Dosage: 500 MG, TID
     Route: 048
  11. BENEMICIN [Concomitant]
     Dosage: UNK UNK, BID
     Route: 061
     Dates: start: 20100113
  12. YAZ [Suspect]
     Indication: PREMENSTRUAL SYNDROME
  13. YASMIN [Suspect]
     Indication: PREMENSTRUAL SYNDROME

REACTIONS (4)
  - INJURY [None]
  - CHOLECYSTITIS [None]
  - CHOLECYSTECTOMY [None]
  - PAIN [None]
